FAERS Safety Report 8160524-0 (Version None)
Quarter: 2012Q1

REPORT INFORMATION
  Report Type: 
  Country: None (occurrence: None)
  Receive Date: 20120223
  Receipt Date: 20120213
  Transmission Date: 20120608
  Serious: Yes (Hospitalization)
  Sender: FDA-Public Use
  Company Number: US-ELI_LILLY_AND_COMPANY-US201201005746

PATIENT
  Sex: Female
  Weight: 63.492 kg

DRUGS (6)
  1. OLANZAPINE [Suspect]
     Indication: SCHIZOPHRENIA
     Dosage: 300 MG, 2/M
     Route: 030
     Dates: start: 20110914
  2. OLANZAPINE [Suspect]
     Dosage: 405 MG, MONTHLY (1/M)
     Route: 030
     Dates: start: 20111026
  3. OLANZAPINE [Suspect]
     Dosage: 405 MG, MONTHLY (1/M)
     Route: 030
     Dates: start: 20110928
  4. OLANZAPINE [Suspect]
     Dosage: 405 MG, MONTHLY (1/M)
     Route: 030
     Dates: start: 20111124
  5. OLANZAPINE [Suspect]
     Dosage: 405 MG, MONTHLY (1/M)
     Route: 030
     Dates: start: 20111221
  6. OLANZAPINE [Suspect]
     Dosage: 405 MG, MONTHLY (1/M)
     Dates: start: 20120118

REACTIONS (5)
  - COMA [None]
  - SEDATION [None]
  - MIOSIS [None]
  - RESPIRATORY DISTRESS [None]
  - TACHYCARDIA [None]
